FAERS Safety Report 7029764-8 (Version None)
Quarter: 2010Q4

REPORT INFORMATION
  Report Type: 
  Country: None (occurrence: None)
  Receive Date: 20101005
  Receipt Date: 20100923
  Transmission Date: 20110411
  Serious: Yes (Hospitalization)
  Sender: FDA-Public Use
  Company Number: US-BRISTOL-MYERS SQUIBB COMPANY-15302508

PATIENT
  Age: 51 Year
  Sex: Male
  Weight: 116 kg

DRUGS (9)
  1. ABILIFY [Suspect]
     Indication: BIPOLAR I DISORDER
     Dosage: 15MG QD:2006,STOPPED ON 12FEB2010;RESTARTED ON 15MAY2010 DOSE INCREASED TO 20MG ON 08JUL10
     Route: 048
     Dates: start: 20100708
  2. ATIVAN [Suspect]
     Indication: BIPOLAR I DISORDER
     Route: 048
     Dates: start: 20100805
  3. ATIVAN [Suspect]
     Indication: ANXIETY
     Route: 048
     Dates: start: 20100805
  4. ASPIRIN [Concomitant]
     Dates: start: 19800701
  5. ATENOLOL [Concomitant]
     Dates: start: 19990701
  6. ECHINACEA [Concomitant]
     Dosage: 1DF: 1 TABLET
     Dates: start: 20100315
  7. LISINOPRIL [Concomitant]
     Dates: start: 20090901
  8. SIMVASTATIN [Concomitant]
     Dosage: TAKEN AT MORNING
     Dates: start: 20100603
  9. VITAMIN B-12 [Concomitant]
     Dosage: 1DF:1 TABLET
     Dates: start: 20100315

REACTIONS (3)
  - CONVULSION [None]
  - FALL [None]
  - LOSS OF CONSCIOUSNESS [None]
